FAERS Safety Report 6161322-X (Version None)
Quarter: 2009Q2

REPORT INFORMATION
  Report Type: 
  Country: None (occurrence: None)
  Receive Date: 20090417
  Receipt Date: 20090417
  Transmission Date: 20091009
  Serious: Yes (Hospitalization)
  Sender: FDA-Public Use
  Company Number: None

PATIENT
  Sex: Male
  Weight: 90.7194 kg

DRUGS (1)
  1. LAMOTRIGINE [Suspect]
     Indication: CONVULSION
     Dosage: 100MG BID PO
     Route: 048
     Dates: start: 20080925, end: 20080929

REACTIONS (4)
  - ATAXIA [None]
  - DIPLOPIA [None]
  - DYSARTHRIA [None]
  - PRODUCT QUALITY ISSUE [None]
